FAERS Safety Report 19080523 (Version 1)
Quarter: 2021Q1

REPORT INFORMATION
  Report Type: Spontaneous
  Country: US (occurrence: US)
  Receive Date: 20210331
  Receipt Date: 20210331
  Transmission Date: 20210420
  Serious: No
  Sender: FDA-Public Use
  Company Number: US-BAYER-2021-112294

PATIENT
  Age: 72 Year
  Sex: Female
  Weight: 65.77 kg

DRUGS (6)
  1. LETROZOLE. [Concomitant]
     Active Substance: LETROZOLE
     Dosage: 2.5 MG, QD
  2. CIPRO [Suspect]
     Active Substance: CIPROFLOXACIN HYDROCHLORIDE
  3. COVID?19 VACCINE NOS. [Suspect]
     Active Substance: COVID-19 VACCINE NOS
     Dosage: UNK
     Dates: start: 20210303
  4. SIMVASTATIN. [Concomitant]
     Active Substance: SIMVASTATIN
     Indication: BLOOD CHOLESTEROL ABNORMAL
     Dosage: 5 MG, QD
  5. L THYROXIN [Concomitant]
     Active Substance: LEVOTHYROXINE SODIUM
     Dosage: 100 ?G, QD
     Dates: start: 1995
  6. DETROL [Concomitant]
     Active Substance: TOLTERODINE TARTRATE

REACTIONS (12)
  - Headache [None]
  - Dizziness [None]
  - Balance disorder [None]
  - Breast swelling [None]
  - Drug hypersensitivity [None]
  - Fatigue [None]
  - Malaise [None]
  - Hot flush [None]
  - Cough [None]
  - Paraesthesia [None]
  - Chills [None]
  - Flushing [None]
